FAERS Safety Report 10075564 (Version 1)
Quarter: 2014Q2

REPORT INFORMATION
  Report Type: Spontaneous
  Country: US (occurrence: None)
  Receive Date: 20140411
  Receipt Date: 20140411
  Transmission Date: 20141212
  Serious: Yes (Hospitalization)
  Sender: FDA-Public Use
  Company Number: None

PATIENT
  Age: 56 Year
  Sex: Male
  Weight: 67.3 kg

DRUGS (1)
  1. IOHEXOL [Suspect]
     Indication: CARDIOVASCULAR DISORDER
     Dates: start: 20140409, end: 20140409

REACTIONS (2)
  - Urticaria [None]
  - Pruritus [None]
